FAERS Safety Report 8343936-1 (Version None)
Quarter: 2012Q2

REPORT INFORMATION
  Report Type: 
  Country: None (occurrence: None)
  Receive Date: 20120508
  Receipt Date: 20101006
  Transmission Date: 20120825
  Serious: No
  Sender: FDA-Public Use
  Company Number: US-TEVA-2010005291

PATIENT
  Sex: Female
  Weight: 49.94 kg

DRUGS (3)
  1. TREANDA [Suspect]
     Indication: BURKITT'S LYMPHOMA
     Route: 042
     Dates: start: 20100901
  2. RITUXAN [Concomitant]
     Indication: NON-HODGKIN'S LYMPHOMA
  3. TREANDA [Suspect]
     Route: 042
     Dates: start: 20100901

REACTIONS (13)
  - EYELID MARGIN CRUSTING [None]
  - HYPERHIDROSIS [None]
  - EYE IRRITATION [None]
  - POLLAKIURIA [None]
  - HEADACHE [None]
  - RASH MACULAR [None]
  - ABDOMINAL PAIN [None]
  - CONSTIPATION [None]
  - DRY SKIN [None]
  - CHEST PAIN [None]
  - VISION BLURRED [None]
  - SKIN EXFOLIATION [None]
  - DRY MOUTH [None]
